FAERS Safety Report 5404211-8 (Version None)
Quarter: 2007Q3

REPORT INFORMATION
  Report Type: 
  Country: None (occurrence: None)
  Receive Date: 20070802
  Receipt Date: 20070727
  Transmission Date: 20080115
  Serious: Yes (Death, Hospitalization)
  Sender: FDA-Public Use
  Company Number: PHHO2006AT16269

PATIENT
  Sex: Male

DRUGS (2)
  1. LEPONEX [Suspect]
     Indication: SCHIZOPHRENIA
     Dosage: 200 UNK, UNK
     Dates: start: 20060211, end: 20060212
  2. LEPONEX [Suspect]
     Dosage: UNKNOWN
     Dates: end: 20060210

REACTIONS (2)
  - AGITATION [None]
  - CARDIAC FAILURE [None]
